FAERS Safety Report 10163745 (Version 1)
Quarter: 2014Q2

REPORT INFORMATION
  Report Type: Spontaneous
  Country: HR (occurrence: HR)
  Receive Date: 20140509
  Receipt Date: 20140509
  Transmission Date: 20141212
  Serious: Yes (Other)
  Sender: FDA-Public Use
  Company Number: HR-009507513-1405HRV005019

PATIENT
  Age: 68 Year
  Sex: Female

DRUGS (9)
  1. ESMERON [Suspect]
     Indication: INDUCTION OF ANAESTHESIA
     Dosage: 100 MG, ONCE
     Route: 042
     Dates: start: 20140505, end: 20140505
  2. CONCOR [Concomitant]
     Dosage: 1 DF, QD
  3. PRILENOR [Concomitant]
     Dosage: 2.5 MG, QPM
  4. PREDUCTAL [Concomitant]
     Dosage: 1 DF, BID
  5. OMACOR [Concomitant]
     Dosage: 1000 G, QD
  6. NOVOMIX [Concomitant]
     Dosage: 50 MG IN THE MORNING AND IN THE NOON AND 30 MG IN THE EVENING
  7. DORMICUM (MIDAZOLAM HYDROCHLORIDE) [Concomitant]
  8. SUFENTANIL [Concomitant]
  9. HYPNOMIDATE [Concomitant]

REACTIONS (7)
  - Ischaemic cerebral infarction [Unknown]
  - Sepsis [Unknown]
  - Anaphylactic reaction [Unknown]
  - Endotracheal intubation [Unknown]
  - Mechanical ventilation [Unknown]
  - Pyrexia [Unknown]
  - Extubation [Unknown]
